FAERS Safety Report 20255245 (Version 2)
Quarter: 2022Q2

REPORT INFORMATION
  Report Type: Report from Study
  Country: BR (occurrence: BR)
  Receive Date: 20211230
  Receipt Date: 20220612
  Transmission Date: 20220720
  Serious: Yes (Hospitalization)
  Sender: FDA-Public Use
  Company Number: BR-JNJFOC-20211252378

PATIENT
  Sex: Male
  Weight: 78 kg

DRUGS (1)
  1. REMICADE [Suspect]
     Active Substance: INFLIXIMAB
     Indication: Psoriatic arthropathy

REACTIONS (4)
  - Syncope [Unknown]
  - Infusion related reaction [Unknown]
  - COVID-19 [Unknown]
  - Cardiac valve prosthesis user [Unknown]
